FAERS Safety Report 18158736 (Version 5)
Quarter: 2021Q1

REPORT INFORMATION
  Report Type: Spontaneous
  Country: US (occurrence: US)
  Receive Date: 20200817
  Receipt Date: 20210222
  Transmission Date: 20210419
  Serious: No
  Sender: FDA-Public Use
  Company Number: US-PFIZER INC-2020315619

PATIENT
  Age: 62 Year
  Sex: Male

DRUGS (2)
  1. XELJANZ XR [Suspect]
     Active Substance: TOFACITINIB CITRATE
     Indication: PSORIATIC ARTHROPATHY
     Dosage: 11 MG, DAILY
     Route: 048
     Dates: start: 202006
  2. METHOTREXATE. [Concomitant]
     Active Substance: METHOTREXATE
     Dosage: UNK

REACTIONS (11)
  - Headache [Unknown]
  - Pain in extremity [Unknown]
  - Muscular weakness [Not Recovered/Not Resolved]
  - Intentional dose omission [Unknown]
  - Arthralgia [Recovering/Resolving]
  - Sinus congestion [Unknown]
  - Epistaxis [Unknown]
  - Musculoskeletal discomfort [Recovering/Resolving]
  - Therapeutic product effect incomplete [Unknown]
  - Intentional product misuse [Unknown]
  - Myalgia [Unknown]

NARRATIVE: CASE EVENT DATE: 2020
